FAERS Safety Report 24095572 (Version 1)
Quarter: 2024Q3

REPORT INFORMATION
  Report Type: Report from Study
  Country: US (occurrence: US)
  Receive Date: 20240716
  Receipt Date: 20240716
  Transmission Date: 20241017
  Serious: Yes (Other)
  Sender: ASTELLAS
  Company Number: US-IRONWOOD PHARMACEUTICALS, INC.-IRWD2024000751

PATIENT
  Age: 49 Year
  Sex: Female

DRUGS (4)
  1. LINACLOTIDE [Interacting]
     Active Substance: LINACLOTIDE
     Indication: Constipation
     Dosage: UNK UNK, ONCE DAILY (FORM STRENGTH: 145 MICROGRAM)
     Route: 048
     Dates: start: 20240315, end: 20240331
  2. MYRBETRIQ [Interacting]
     Active Substance: MIRABEGRON
     Indication: Hypertonic bladder
     Route: 065
     Dates: start: 2022, end: 2024
  3. DULCOLAX (BISACODYL) [Interacting]
     Active Substance: BISACODYL
     Indication: Constipation
     Dosage: UNK UNK, UNKNOWN FREQ.
     Route: 065
     Dates: end: 2024
  4. TOLTERODINE TARTRATE [Interacting]
     Active Substance: TOLTERODINE TARTRATE
     Indication: Product used for unknown indication
     Route: 065
     Dates: start: 2022, end: 2024

REACTIONS (8)
  - Diarrhoea haemorrhagic [Recovered/Resolved]
  - Diarrhoea [Recovered/Resolved]
  - Abdominal distension [Recovered/Resolved]
  - Bladder discomfort [Recovered/Resolved]
  - Fluid retention [Recovered/Resolved]
  - Anger [Recovered/Resolved]
  - Unevaluable event [Recovered/Resolved]
  - Drug interaction [Recovered/Resolved]

NARRATIVE: CASE EVENT DATE: 20240101
